FAERS Safety Report 14299472 (Version 1)
Quarter: 2017Q4

REPORT INFORMATION
  Report Type: Spontaneous
  Country: JP (occurrence: JP)
  Receive Date: 20171219
  Receipt Date: 20171219
  Transmission Date: 20180321
  Serious: Yes (Life-Threatening, Hospitalization, Other)
  Sender: FDA-Public Use
  Company Number: JP-VISTAPHARM, INC.-VER201712-001334

PATIENT
  Age: 62 Year
  Sex: Male

DRUGS (5)
  1. IMIPRAMINE [Suspect]
     Active Substance: IMIPRAMINE
  2. LITHIUM CARBONATE. [Suspect]
     Active Substance: LITHIUM CARBONATE
     Indication: AFFECTIVE DISORDER
  3. DOPAMINE [Concomitant]
     Active Substance: DOPAMINE\DOPAMINE HYDROCHLORIDE
     Indication: ACUTE KIDNEY INJURY
     Route: 041
  4. METOCLOPRAMIDE. [Suspect]
     Active Substance: METOCLOPRAMIDE
     Indication: NAUSEA
     Route: 042
  5. IMIPRAMINE [Suspect]
     Active Substance: IMIPRAMINE
     Indication: AFFECTIVE DISORDER

REACTIONS (2)
  - Neuroleptic malignant syndrome [Recovering/Resolving]
  - Serotonin syndrome [Recovering/Resolving]
